FAERS Safety Report 5036863-9 (Version None)
Quarter: 2006Q2

REPORT INFORMATION
  Report Type: 
  Country: None (occurrence: None)
  Receive Date: 20060622
  Receipt Date: 20060609
  Transmission Date: 20061013
  Serious: Yes (Life-Threatening)
  Sender: FDA-Public Use
  Company Number: 2006073223

PATIENT
  Age: 27 Year
  Sex: Male

DRUGS (3)
  1. IDARUBICIN HCL [Suspect]
     Indication: DRUG USE FOR UNKNOWN INDICATION
  2. CYTARABINE [Suspect]
     Indication: DRUG USE FOR UNKNOWN INDICATION
  3. ETOPOSIDE [Suspect]
     Indication: DRUG USE FOR UNKNOWN INDICATION

REACTIONS (7)
  - ENTEROCOLITIS [None]
  - ILEUS [None]
  - LUNG CONSOLIDATION [None]
  - METABOLIC ALKALOSIS [None]
  - PLEURAL EFFUSION [None]
  - PYREXIA [None]
  - SMALL INTESTINAL OBSTRUCTION [None]
